FAERS Safety Report 5795052-0 (Version None)
Quarter: 2008Q2

REPORT INFORMATION
  Report Type: 
  Country: None (occurrence: None)
  Receive Date: 20080630
  Receipt Date: 20080319
  Transmission Date: 20081010
  Serious: No
  Sender: FDA-Public Use
  Company Number: US-BRISTOL-MYERS SQUIBB COMPANY-14120877

PATIENT
  Age: 55 Year
  Sex: Male
  Weight: 135 kg

DRUGS (4)
  1. ORENCIA [Suspect]
     Dates: start: 20070101
  2. CYMBALTA [Concomitant]
  3. FLAXSEED OIL [Concomitant]
  4. IBUROFEN [Concomitant]

REACTIONS (1)
  - DRUG INEFFECTIVE [None]
